FAERS Safety Report 4504608-4 (Version None)
Quarter: 2004Q4

REPORT INFORMATION
  Report Type: 
  Country: None (occurrence: None)
  Receive Date: 20041118
  Receipt Date: 20041027
  Transmission Date: 20050328
  Serious: Yes (Other)
  Sender: FDA-Public Use
  Company Number: JP-GLAXOSMITHKLINE-B0350194A

PATIENT
  Age: 82 Year
  Sex: Female

DRUGS (5)
  1. VALTREX [Suspect]
     Indication: HERPES ZOSTER
     Route: 048
  2. DEPROMEL [Concomitant]
     Route: 048
  3. ARICEPT [Concomitant]
     Route: 048
  4. SEROQUEL [Concomitant]
     Route: 048
  5. LENDORMIN [Concomitant]
     Route: 048

REACTIONS (1)
  - DEMENTIA [None]
